FAERS Safety Report 18555490 (Version 3)
Quarter: 2021Q3

REPORT INFORMATION
  Report Type: Spontaneous
  Country: US (occurrence: US)
  Receive Date: 20201127
  Receipt Date: 20210804
  Transmission Date: 20211014
  Serious: No
  Sender: FDA-Public Use
  Company Number: US-009507513-2010SP041997

PATIENT
  Age: 70 Year
  Sex: Female

DRUGS (2)
  1. PROVENTIL [Suspect]
     Active Substance: ALBUTEROL
     Indication: ASTHMA
     Dosage: UNK
  2. PROVENTIL [Suspect]
     Active Substance: ALBUTEROL
     Indication: DYSPNOEA
     Dosage: 90 (UNITS UNSPECIFIED)/2 PUFFS EVERY 4?6 HOURS AS NEEDED

REACTIONS (4)
  - No adverse event [Unknown]
  - Product delivery mechanism issue [Unknown]
  - Off label use [Unknown]
  - Product packaging issue [Unknown]

NARRATIVE: CASE EVENT DATE: 20201123
